FAERS Safety Report 6539210-6 (Version None)
Quarter: 2010Q1

REPORT INFORMATION
  Report Type: 
  Country: None (occurrence: None)
  Receive Date: 20100115
  Receipt Date: 20100108
  Transmission Date: 20100710
  Serious: Yes (Other)
  Sender: FDA-Public Use
  Company Number: US-JNJFOC-20100103189

PATIENT
  Age: 41 Year
  Sex: Male

DRUGS (3)
  1. REMICADE [Suspect]
     Indication: COLITIS ULCERATIVE
     Route: 042
  2. ANESTHESIA [Concomitant]
     Indication: SURGERY
  3. PAIN KILLERS [Concomitant]
     Indication: PAIN

REACTIONS (3)
  - NIGHT SWEATS [None]
  - RECTAL HAEMORRHAGE [None]
  - WRIST FRACTURE [None]
